FAERS Safety Report 21716587 (Version 1)
Quarter: 2022Q4

REPORT INFORMATION
  Report Type: Spontaneous
  Country: US (occurrence: US)
  Receive Date: 20221212
  Receipt Date: 20221212
  Transmission Date: 20230113
  Serious: No
  Sender: FDA-Public Use
  Company Number: US-GBT-013929

PATIENT
  Age: 48 Year
  Sex: Female

DRUGS (1)
  1. OXBRYTA [Suspect]
     Active Substance: VOXELOTOR
     Indication: Sickle cell disease
     Dosage: DOSE: 5 X 300 MG DISSOLVED IN 25 ML CLEAR LIQUID IN ROOM?TEMP.
     Route: 048
     Dates: start: 20220621

REACTIONS (6)
  - Sickle cell anaemia with crisis [Unknown]
  - Product dose omission issue [Unknown]
  - Rash [Recovering/Resolving]
  - Abdominal discomfort [Recovering/Resolving]
  - Headache [Unknown]
  - Nausea [Recovering/Resolving]

NARRATIVE: CASE EVENT DATE: 20220716
